FAERS Safety Report 13950583 (Version 1)
Quarter: 2017Q3

REPORT INFORMATION
  Report Type: Spontaneous
  Country: US (occurrence: US)
  Receive Date: 20170908
  Receipt Date: 20170908
  Transmission Date: 20171128
  Serious: No
  Sender: FDA-Public Use
  Company Number: US-ROCHE-1131194

PATIENT
  Age: 70 Year
  Sex: Male
  Weight: 70.37 kg

DRUGS (2)
  1. PROCRIT [Concomitant]
     Active Substance: ERYTHROPOIETIN
  2. RITUXAN [Suspect]
     Active Substance: RITUXIMAB
     Indication: NON-HODGKIN^S LYMPHOMA
     Route: 065

REACTIONS (4)
  - Pharyngitis [Unknown]
  - Dysphonia [Unknown]
  - Oropharyngeal pain [Unknown]
  - Neoplasm [Unknown]

NARRATIVE: CASE EVENT DATE: 20000802
